FAERS Safety Report 25934643 (Version 1)
Quarter: 2025Q4

REPORT INFORMATION
  Report Type: Spontaneous
  Country: JP (occurrence: JP)
  Receive Date: 20251017
  Receipt Date: 20251017
  Transmission Date: 20260117
  Serious: Yes (Life-Threatening, Hospitalization, Other)
  Sender: CADILA
  Company Number: JP-CPL-005833

PATIENT
  Age: 48 Year
  Sex: Female
  Weight: 66.8 kg

DRUGS (11)
  1. VENLAFAXINE [Suspect]
     Active Substance: VENLAFAXINE HYDROCHLORIDE
  2. MIRTAZAPINE [Suspect]
     Active Substance: MIRTAZAPINE
  3. CHLORPROMAZINE [Suspect]
     Active Substance: CHLORPROMAZINE
  4. NITRAZEPAM [Suspect]
     Active Substance: NITRAZEPAM
  5. ALPRAZOLAM [Suspect]
     Active Substance: ALPRAZOLAM
  6. FLUNITRAZEPAM [Suspect]
     Active Substance: FLUNITRAZEPAM
  7. LORAZEPAM [Suspect]
     Active Substance: LORAZEPAM
  8. ETIZOLAM [Suspect]
     Active Substance: ETIZOLAM
  9. HALOXAZOLAM [Suspect]
     Active Substance: HALOXAZOLAM
  10. FENOFIBRATE [Suspect]
     Active Substance: FENOFIBRATE
  11. ASPIRIN [Suspect]
     Active Substance: ASPIRIN

REACTIONS (6)
  - Cardiogenic shock [Unknown]
  - Vasoconstriction [Unknown]
  - Hepatic function abnormal [Unknown]
  - Renal disorder [Unknown]
  - Overdose [Unknown]
  - Loss of consciousness [Unknown]
